FAERS Safety Report 9259274 (Version 2)
Quarter: 2013Q2

REPORT INFORMATION
  Report Type: Spontaneous
  Country: GB (occurrence: GB)
  Receive Date: 20130426
  Receipt Date: 20130628
  Transmission Date: 20140414
  Serious: Yes (Other)
  Sender: FDA-Public Use
  Company Number: GB-ALLERGAN-1305963US

PATIENT
  Sex: Female

DRUGS (1)
  1. TROSPIUM CHLORIDE UNK [Suspect]
     Indication: PRODUCT USED FOR UNKNOWN INDICATION

REACTIONS (14)
  - Disorientation [Unknown]
  - Headache [Unknown]
  - Hallucination [Unknown]
  - Dyspnoea [Unknown]
  - Incontinence [Unknown]
  - Pruritus [Unknown]
  - Mobility decreased [Unknown]
  - Arteriosclerosis [Unknown]
  - Gait disturbance [Unknown]
  - Condition aggravated [Unknown]
  - Urinary incontinence [Unknown]
  - Cerebral disorder [Unknown]
  - Vision blurred [Unknown]
  - Rash [Unknown]
